FAERS Safety Report 10383806 (Version 1)
Quarter: 2014Q3

REPORT INFORMATION
  Report Type: Spontaneous
  Country: US (occurrence: US)
  Receive Date: 20140814
  Receipt Date: 20140814
  Transmission Date: 20150326
  Serious: Yes (Death, Life-Threatening)
  Sender: FDA-Public Use
  Company Number: US-GE HEALTHCARE MEDICAL DIAGNOSTICS-OSCN-PR-1408L-0133

PATIENT
  Age: 56 Year
  Sex: Female

DRUGS (2)
  1. GADOLINIUM (UNSPECIFIED) [Suspect]
     Active Substance: GADOLINIUM
     Indication: DIAGNOSTIC PROCEDURE
     Route: 065
     Dates: start: 2009, end: 2009
  2. GADOLINIUM (UNSPECIFIED) [Suspect]
     Active Substance: GADOLINIUM
     Indication: RENAL HAEMATOMA
     Route: 065
     Dates: start: 2004, end: 2004

REACTIONS (2)
  - Nephrogenic systemic fibrosis [Fatal]
  - Superior vena cava occlusion [Fatal]

NARRATIVE: CASE EVENT DATE: 2004
